FAERS Safety Report 20969899 (Version 3)
Quarter: 2022Q3

REPORT INFORMATION
  Report Type: Spontaneous
  Country: US (occurrence: US)
  Receive Date: 20220616
  Receipt Date: 20220701
  Transmission Date: 20221027
  Serious: No
  Sender: FDA-Public Use
  Company Number: US-SA-SAC20220602001550

PATIENT
  Age: 62 Year
  Sex: Female

DRUGS (24)
  1. DUPIXENT [Suspect]
     Active Substance: DUPILUMAB
     Indication: Asthma
     Dosage: 300 MG, QOW
     Route: 058
     Dates: start: 20220412
  2. ALBUTEROL [Concomitant]
     Active Substance: ALBUTEROL
  3. ALPRAZOLAM [Concomitant]
     Active Substance: ALPRAZOLAM
  4. ALPRAZOLAM [Concomitant]
     Active Substance: ALPRAZOLAM
  5. ASMANEX [Concomitant]
     Active Substance: MOMETASONE FUROATE
  6. ATARAX [Concomitant]
     Active Substance: HYDROXYZINE HYDROCHLORIDE
  7. ATORVASTATIN [Concomitant]
     Active Substance: ATORVASTATIN
  8. BIAXIN [Concomitant]
     Active Substance: CLARITHROMYCIN
  9. VITAMIN D3 [Concomitant]
     Active Substance: CHOLECALCIFEROL
  10. VITAMIN D3 [Concomitant]
     Active Substance: CHOLECALCIFEROL
     Dosage: STRENGTH- 2000 UNIT
  11. EZETIMIBE [Concomitant]
     Active Substance: EZETIMIBE
  12. FLONASE [Concomitant]
     Active Substance: FLUTICASONE PROPIONATE
  13. FLOVENT [Concomitant]
     Active Substance: FLUTICASONE PROPIONATE
  14. LASIX [Concomitant]
     Active Substance: FUROSEMIDE
  15. LORATADINE [Concomitant]
     Active Substance: LORATADINE
  16. NUCYNTA [Concomitant]
     Active Substance: TAPENTADOL HYDROCHLORIDE
  17. NYSTATIN [Concomitant]
     Active Substance: NYSTATIN
  18. OMEPRAZOLE [Concomitant]
     Active Substance: OMEPRAZOLE
  19. PREDNISONE [Concomitant]
     Active Substance: PREDNISONE
  20. PROMETHAZINE [Concomitant]
     Active Substance: PROMETHAZINE HYDROCHLORIDE
  21. SYMBICORT [Concomitant]
     Active Substance: BUDESONIDE\FORMOTEROL FUMARATE DIHYDRATE
  22. SYNTHROID [Concomitant]
     Active Substance: LEVOTHYROXINE SODIUM
  23. POTASSIUM CHLORIDE [Concomitant]
     Active Substance: POTASSIUM CHLORIDE
  24. VITAMIN D3 [Concomitant]
     Active Substance: CHOLECALCIFEROL

REACTIONS (3)
  - Asthma [Not Recovered/Not Resolved]
  - Impaired quality of life [Not Recovered/Not Resolved]
  - Oral herpes [Not Recovered/Not Resolved]

NARRATIVE: CASE EVENT DATE: 20220501
